FAERS Safety Report 10787884 (Version 1)
Quarter: 2015Q1

REPORT INFORMATION
  Report Type: Spontaneous
  Country: IT (occurrence: None)
  Receive Date: 20150210
  Receipt Date: 20150210
  Transmission Date: 20150721
  Serious: Yes (Other)
  Sender: FDA-Public Use
  Company Number: 2729713

PATIENT
  Age: 68 Year
  Sex: Male

DRUGS (1)
  1. GEMCITABINE HYDROCHLORIDE. [Suspect]
     Active Substance: GEMCITABINE HYDROCHLORIDE
     Indication: PANCREATIC CARCINOMA
     Dosage: 1500 MG, CYCLICAL, INTRAVENOUS
     Route: 042
     Dates: start: 20150107, end: 20150121

REACTIONS (5)
  - Pyrexia [None]
  - Nausea [None]
  - Asthenia [None]
  - Dysgeusia [None]
  - Anaemia [None]

NARRATIVE: CASE EVENT DATE: 20150115
